FAERS Safety Report 15246063 (Version 1)
Quarter: 2018Q3

REPORT INFORMATION
  Report Type: Spontaneous
  Country: US (occurrence: US)
  Receive Date: 20180806
  Receipt Date: 20180806
  Transmission Date: 20181010
  Serious: No
  Sender: FDA-Public Use
  Company Number: US-PFIZER INC-2018309733

PATIENT
  Age: 1 Year
  Sex: Female

DRUGS (1)
  1. GENOTROPIN [Suspect]
     Active Substance: SOMATROPIN
     Dosage: 0.5 MG, DAILY
     Dates: start: 20140111

REACTIONS (7)
  - Blood potassium increased [Unknown]
  - Carbon dioxide decreased [Unknown]
  - Blood calcium increased [Unknown]
  - Blood creatinine decreased [Unknown]
  - Blood sodium decreased [Unknown]
  - Blood chloride increased [Unknown]
  - Cortisol decreased [Unknown]

NARRATIVE: CASE EVENT DATE: 20140917
